FAERS Safety Report 17113171 (Version 7)
Quarter: 2020Q2

REPORT INFORMATION
  Report Type: Report from Study
  Country: SA (occurrence: SA)
  Receive Date: 20191204
  Receipt Date: 20200501
  Transmission Date: 20200713
  Serious: Yes (Disabling)
  Sender: FDA-Public Use
  Company Number: SA-CELLTRION INC.-2019SA026932

PATIENT

DRUGS (20)
  1. PREDNISOLONE. [Concomitant]
     Active Substance: PREDNISOLONE
     Indication: COLITIS ULCERATIVE
     Dosage: 8 TABLETS (40MG PER DAY)
     Route: 048
     Dates: start: 20190210, end: 20190410
  2. FOLIC ACID. [Concomitant]
     Active Substance: FOLIC ACID
     Indication: PROPHYLAXIS
  3. SULFASALAZINE. [Concomitant]
     Active Substance: SULFASALAZINE
     Indication: ARTHRITIS
     Dosage: 2000 MG (1000 MG, 2 IN 1 D)
     Route: 048
     Dates: start: 20190623, end: 20191014
  4. REMSIMA [Suspect]
     Active Substance: INFLIXIMAB
     Dosage: UNK, RECEIVED THE NEXT DOSE AFTER 6 WEEKS (V6)
     Dates: start: 20190902
  5. HYDROCORTISONE. [Concomitant]
     Active Substance: HYDROCORTISONE
     Indication: INFUSION RELATED REACTION
     Dosage: 100 MG, STAT
     Route: 042
     Dates: start: 20190902, end: 20190902
  6. MESALAZINE [Concomitant]
     Active Substance: MESALAMINE
     Indication: COLITIS ULCERATIVE
     Dosage: 2000 MG (1000 MG, 2 IN 1 D)
     Route: 048
     Dates: end: 20190623
  7. SULFASALAZINE. [Concomitant]
     Active Substance: SULFASALAZINE
     Dosage: 4000 MG (1000 MG,4 IN 1 D)
     Route: 048
     Dates: start: 20191015
  8. REMSIMA [Suspect]
     Active Substance: INFLIXIMAB
     Dosage: UNK, AT WEEK 12
     Dates: start: 20190722
  9. HYDROCORTISONE. [Concomitant]
     Active Substance: HYDROCORTISONE
     Indication: RASH
     Dosage: 100 MG, STAT
     Route: 042
     Dates: start: 20191014, end: 20191014
  10. REMSIMA [Suspect]
     Active Substance: INFLIXIMAB
     Dosage: 5 MG/KG (300MG) (AFTER 6 WEEKS RECEIVED NEXT DOSE) V7
     Route: 042
     Dates: start: 20191014
  11. HYDROCORTISONE. [Concomitant]
     Active Substance: HYDROCORTISONE
     Indication: PRURITUS
  12. CHOLECALCIFEROL [Concomitant]
     Active Substance: CHOLECALCIFEROL
     Indication: OSTEOPOROSIS
     Dosage: 7142.8571 IU (50000 IU,1 IN 1 WK)
     Route: 048
     Dates: start: 20190618
  13. ALENDRONATE [Concomitant]
     Active Substance: ALENDRONATE SODIUM
     Indication: OSTEOPOROSIS
     Dosage: 10 MG (70 MG,1 IN 1 WK)
     Route: 048
     Dates: start: 20190618
  14. FOLIC ACID. [Concomitant]
     Active Substance: FOLIC ACID
     Indication: ARTHRITIS
     Dosage: 1 MG (1 MG,1 IN 1 D)
     Route: 048
     Dates: start: 20190623
  15. INSULIN GLARGINE [Concomitant]
     Active Substance: INSULIN GLARGINE
     Indication: TYPE 1 DIABETES MELLITUS
     Dosage: 30 IU (10 IU,3 IN 1 D)
     Route: 058
  16. CALCIUM CARBONATE. [Concomitant]
     Active Substance: CALCIUM CARBONATE
     Indication: OSTEOPOROSIS
     Dosage: 600 MG (600 MG,1 IN 1 D)
     Route: 048
     Dates: start: 20190618
  17. AZATHIOPRINE. [Concomitant]
     Active Substance: AZATHIOPRINE
     Indication: COLITIS ULCERATIVE
     Dosage: 2 TABLETS 50MG  (100 MG,1 IN 1 D)
     Route: 048
  18. REMSIMA [Suspect]
     Active Substance: INFLIXIMAB
     Indication: COLITIS ULCERATIVE
     Dosage: 5 MG/KG (300 MG, WEEK 0, 2 AND 6, THEN EVERY 6 WEEKS FOR 3 DOSES)
     Route: 042
     Dates: start: 20190425
  19. PREDNISOLONE. [Concomitant]
     Active Substance: PREDNISOLONE
     Dosage: 8 TABLETS (40MG PER DAY)
     Route: 048
     Dates: start: 20190520
  20. INSULIN ASPART [Concomitant]
     Active Substance: INSULIN ASPART
     Indication: TYPE 1 DIABETES MELLITUS
     Dosage: 30 IU (10 IU,3 IN 1 D)
     Route: 058

REACTIONS (2)
  - Bursitis [Not Recovered/Not Resolved]
  - Product use issue [Unknown]

NARRATIVE: CASE EVENT DATE: 20191014
